FAERS Safety Report 8166530-4 (Version None)
Quarter: 2012Q1

REPORT INFORMATION
  Report Type: 
  Country: None (occurrence: None)
  Receive Date: 20120227
  Receipt Date: 20120213
  Transmission Date: 20120608
  Serious: Yes (Hospitalization)
  Sender: FDA-Public Use
  Company Number: IT-MYLANLABS-2012S1003190

PATIENT
  Age: 91 Year
  Sex: Male

DRUGS (7)
  1. LORAZEPAM [Suspect]
     Indication: INSOMNIA
     Route: 048
     Dates: start: 20111210, end: 20111212
  2. ACETYLCYSTEINE [Concomitant]
     Indication: BRONCHITIS
  3. FUROSEMIDE [Concomitant]
     Indication: MYOCARDIAL ISCHAEMIA
  4. CAPTOPRIL [Concomitant]
     Indication: HYPERTENSION
  5. MONOKET [Concomitant]
     Indication: MYOCARDIAL ISCHAEMIA
  6. OMEPRAZOLE [Concomitant]
     Indication: PROPHYLAXIS AGAINST GASTROINTESTINAL ULCER
  7. ASPIRIN [Concomitant]
     Indication: MYOCARDIAL ISCHAEMIA

REACTIONS (2)
  - DIZZINESS [None]
  - SYNCOPE [None]
